FAERS Safety Report 9148035 (Version 1)
Quarter: 2013Q1

REPORT INFORMATION
  Report Type: Spontaneous
  Country: DE (occurrence: DE)
  Receive Date: 20130308
  Receipt Date: 20130308
  Transmission Date: 20140127
  Serious: Yes (Congenital Anomaly)
  Sender: FDA-Public Use
  Company Number: DE-RANBAXY-2013RR-65609

PATIENT
  Sex: Female
  Weight: 2 kg

DRUGS (6)
  1. VENLAFAXINE [Suspect]
     Dosage: 300 MG/DAY TILL WEEK 5: 300 MG/DAY; WK 5-16: 150 MG/DAY; WK 16-28: 75 MG/DAY; FROM WK 28 ON: 37.5 MG
     Route: 064
     Dates: start: 20111012, end: 20120606
  2. METFORMIN [Suspect]
     Dosage: 850 MG, BID
     Route: 064
  3. MELPERONE [Suspect]
     Dosage: 200 MG/DAY TILL WEEK 5: 200 MG/DAY; WK 5-7: 100 MG/DAY; WK 7-28: 50 MG/DAY; FROM WK 28 ON: 25 MG/DAY
     Route: 064
     Dates: start: 20111012, end: 20120606
  4. FRAGMIN P FORTE [Concomitant]
     Dosage: 5000 IU/DAY; 7. - 34. GESTATIONAL WEEK
     Route: 064
  5. KADEFUNGIN COMBI [Concomitant]
     Dosage: 3 COURSES: IN MONTH 3, 5 AND 8
     Route: 064
  6. FEMIBION [Concomitant]
     Dosage: 0.8 MG/DAY; 5. - 34. GESTATIONAL WEEK
     Route: 064

REACTIONS (9)
  - Fallot^s tetralogy [Recovered/Resolved with Sequelae]
  - Congenital uterine anomaly [Not Recovered/Not Resolved]
  - Anal atresia [Not Recovered/Not Resolved]
  - Congenital absence of bile ducts [Not Recovered/Not Resolved]
  - Persistent cloaca [Not Recovered/Not Resolved]
  - Spine malformation [Not Recovered/Not Resolved]
  - Atrial septal defect [Recovered/Resolved with Sequelae]
  - Right aortic arch [Recovered/Resolved with Sequelae]
  - Persistent left superior vena cava [Recovered/Resolved with Sequelae]
